FAERS Safety Report 9789689 (Version 3)
Quarter: 2014Q1

REPORT INFORMATION
  Report Type: Spontaneous
  Country: JP (occurrence: None)
  Receive Date: 20131227
  Receipt Date: 20140115
  Transmission Date: 20141002
  Serious: Yes (Hospitalization, Other)
  Sender: FDA-Public Use
  Company Number: ADR-2013-02332

PATIENT
  Age: 58 Year
  Sex: Male

DRUGS (1)
  1. GABALON INTRATHECAL [Suspect]
     Indication: MUSCLE SPASTICITY
     Dates: start: 20100708

REACTIONS (4)
  - Myelitis [None]
  - Condition aggravated [None]
  - Spinal cord disorder [None]
  - Medical device complication [None]
